FAERS Safety Report 8966074 (Version 2)
Quarter: 2013Q1

REPORT INFORMATION
  Report Type: Report from Study
  Country: US (occurrence: US)
  Receive Date: 20121217
  Receipt Date: 20130117
  Transmission Date: 20140127
  Serious: No
  Sender: FDA-Public Use
  Company Number: US-VERTEX PHARMACEUTICAL INC.-2012-023880

PATIENT
  Age: 54 None
  Sex: Female
  Weight: 72 kg

DRUGS (6)
  1. VX-950 (TELAPREVIR) [Suspect]
     Indication: HEPATITIS C
     Dosage: 750 MG, TID
     Route: 048
     Dates: start: 20121112
  2. RIBASPHERE [Suspect]
     Indication: HEPATITIS C
     Dosage: 3 DF, BID
     Route: 048
     Dates: start: 20121112
  3. RIBASPHERE [Suspect]
     Dosage: 600 MG, QD
  4. PEGASYS [Suspect]
     Indication: HEPATITIS C
     Dosage: 180 ?G,QW
     Route: 058
     Dates: start: 20121112
  5. CITALOPRAM [Concomitant]
     Dosage: 10 MG, QD
     Route: 048
  6. IBUPROFEN [Concomitant]
     Indication: PAIN
     Dosage: 400 MG, PRN
     Route: 048

REACTIONS (12)
  - Depression [Unknown]
  - Dyspnoea exertional [Unknown]
  - Dry throat [Unknown]
  - Oropharyngeal pain [Unknown]
  - Apathy [Unknown]
  - Injection site swelling [Unknown]
  - Fatigue [Unknown]
  - Rash [Unknown]
  - Haematochezia [Unknown]
  - Anaemia [Unknown]
  - Anorectal discomfort [Unknown]
  - Pruritus [Unknown]
